FAERS Safety Report 11640984 (Version 2)
Quarter: 2015Q4

REPORT INFORMATION
  Report Type: Report from Study
  Country: US (occurrence: US)
  Receive Date: 20151019
  Receipt Date: 20151022
  Transmission Date: 20160304
  Serious: Yes (Hospitalization)
  Sender: FDA-Public Use
  Company Number: US-ACTELION-A-US2015-123431

PATIENT
  Age: 71 Year
  Sex: Male

DRUGS (4)
  1. VELETRI [Suspect]
     Active Substance: EPOPROSTENOL
     Indication: PULMONARY HYPERTENSION
     Dosage: 10 NG/KG, PER MIN
     Route: 042
     Dates: start: 20150807
  2. REVATIO [Concomitant]
     Active Substance: SILDENAFIL CITRATE
  3. VELETRI [Suspect]
     Active Substance: EPOPROSTENOL
     Dosage: 15 NG/KG, PER MIN
     Route: 042
     Dates: start: 20150807, end: 201510
  4. WARFARIN [Concomitant]
     Active Substance: WARFARIN

REACTIONS (30)
  - Joint swelling [Not Recovered/Not Resolved]
  - Agitation [Unknown]
  - Fluid retention [Unknown]
  - Oedema [Unknown]
  - Influenza like illness [Not Recovered/Not Resolved]
  - Bedridden [Unknown]
  - Trismus [Unknown]
  - Rash [Unknown]
  - Peripheral swelling [Unknown]
  - Drug intolerance [Unknown]
  - Flushing [Unknown]
  - Pain in jaw [Unknown]
  - Anxiety [Unknown]
  - Cyanosis [Unknown]
  - Eye oedema [Unknown]
  - Nausea [Unknown]
  - Blister [Unknown]
  - Myalgia [Unknown]
  - Feeling abnormal [Unknown]
  - Vomiting [Unknown]
  - Swelling face [Unknown]
  - Hypersomnia [Unknown]
  - Decreased appetite [Unknown]
  - Asthenia [Unknown]
  - Arthralgia [Unknown]
  - No therapeutic response [Unknown]
  - Fatigue [Unknown]
  - Pain [Not Recovered/Not Resolved]
  - Headache [Unknown]
  - Infusion site rash [Unknown]

NARRATIVE: CASE EVENT DATE: 20150823
